FAERS Safety Report 5465660-5 (Version None)
Quarter: 2007Q3

REPORT INFORMATION
  Report Type: 
  Country: None (occurrence: None)
  Receive Date: 20070919
  Receipt Date: 20070919
  Transmission Date: 20080115
  Serious: Yes (Other)
  Sender: FDA-Public Use
  Company Number: None

PATIENT
  Age: 68 Year
  Sex: Female

DRUGS (3)
  1. DLT-XR 240MG CAPS APOTEX [Suspect]
     Indication: HYPERTENSION
     Dosage: TAKE 1 TABLET DAILY
     Dates: start: 20050201
  2. ZYRTEC [Concomitant]
  3. EFFEXOR [Concomitant]

REACTIONS (4)
  - NERVOUSNESS [None]
  - PALPITATIONS [None]
  - PHARMACEUTICAL PRODUCT COMPLAINT [None]
  - TREMOR [None]
